FAERS Safety Report 12267249 (Version 3)
Quarter: 2016Q3

REPORT INFORMATION
  Report Type: Spontaneous
  Country: US (occurrence: US)
  Receive Date: 20160414
  Receipt Date: 20160921
  Transmission Date: 20161109
  Serious: Yes (Other)
  Sender: FDA-Public Use
  Company Number: US-PFIZER INC-2016206128

PATIENT
  Age: 50 Year
  Sex: Female
  Weight: 136.8 kg

DRUGS (5)
  1. IBRANCE [Suspect]
     Active Substance: PALBOCICLIB
     Dosage: 100 MG, DAILY
  2. IBRANCE [Suspect]
     Active Substance: PALBOCICLIB
     Dosage: UNK, CYCLIC
     Dates: start: 20160314
  3. LETROZOLE. [Suspect]
     Active Substance: LETROZOLE
     Dosage: UNK
  4. LETROZOLE. [Suspect]
     Active Substance: LETROZOLE
     Indication: BREAST CANCER STAGE IV
     Dosage: 2.5 MG, 1X/DAY
     Route: 048
     Dates: start: 201410
  5. IBRANCE [Suspect]
     Active Substance: PALBOCICLIB
     Indication: BREAST CANCER STAGE IV
     Dosage: 125 MG, 1X/DAY
     Route: 048

REACTIONS (10)
  - Rash [Not Recovered/Not Resolved]
  - Lyme disease [Unknown]
  - Photosensitivity reaction [Recovering/Resolving]
  - Bronchitis [Recovered/Resolved]
  - Fatigue [Recovering/Resolving]
  - Skin papilloma [Not Recovered/Not Resolved]
  - Pain in extremity [Recovering/Resolving]
  - Onychomycosis [Not Recovered/Not Resolved]
  - White blood cell count decreased [Not Recovered/Not Resolved]
  - Skin infection [Not Recovered/Not Resolved]

NARRATIVE: CASE EVENT DATE: 201412
